FAERS Safety Report 5310515-X (Version None)
Quarter: 2007Q2

REPORT INFORMATION
  Report Type: 
  Country: None (occurrence: None)
  Receive Date: 20070427
  Receipt Date: 20070416
  Transmission Date: 20071010
  Serious: Yes (Hospitalization)
  Sender: FDA-Public Use
  Company Number: AR-GENENTECH-240288

PATIENT
  Sex: Male

DRUGS (1)
  1. AVASTIN [Suspect]
     Indication: VENOUS THROMBOSIS
     Dosage: 0.5 MG, SINGLE
     Route: 031
     Dates: start: 20061115, end: 20061115

REACTIONS (2)
  - ENDOPHTHALMITIS [None]
  - EYE EXCISION [None]
